FAERS Safety Report 7564732-9 (Version None)
Quarter: 2011Q2

REPORT INFORMATION
  Report Type: 
  Country: None (occurrence: None)
  Receive Date: 20110622
  Receipt Date: 20101109
  Transmission Date: 20111010
  Serious: Yes (Other)
  Sender: FDA-Public Use
  Company Number: US-MYLANLABS-2010S1018529

PATIENT
  Age: 46 Year
  Sex: Female
  Weight: 67.9 kg

DRUGS (3)
  1. CLOZAPINE [Suspect]
     Route: 048
     Dates: start: 20100308, end: 20100930
  2. CLOZAPINE [Suspect]
     Route: 048
     Dates: start: 20100930, end: 20101004
  3. CLOZAPINE [Suspect]
     Indication: SCHIZOPHRENIA
     Route: 048
     Dates: start: 20100301, end: 20100308

REACTIONS (1)
  - GRANULOCYTOPENIA [None]
